FAERS Safety Report 15108144 (Version 1)
Quarter: 2018Q3

REPORT INFORMATION
  Report Type: Spontaneous
  Country: BR (occurrence: BR)
  Receive Date: 20180705
  Receipt Date: 20180705
  Transmission Date: 20181010
  Serious: Yes (Hospitalization)
  Sender: FDA-Public Use
  Company Number: BR-ALEMBIC PHARMACUETICALS LIMITED-2018SCAL000431

PATIENT

DRUGS (2)
  1. HYDROCHLOROTHIAZIDE. [Concomitant]
     Active Substance: HYDROCHLOROTHIAZIDE
     Indication: HYPERTENSION
     Dosage: UNK
  2. OLMESARTAN MEDOXOMIL. [Suspect]
     Active Substance: OLMESARTAN MEDOXOMIL
     Indication: HYPERTENSION
     Dosage: UNK

REACTIONS (12)
  - Weight decreased [Unknown]
  - Hypokalaemia [Unknown]
  - Renal impairment [Unknown]
  - Normochromic normocytic anaemia [None]
  - Colitis [Unknown]
  - Gastrointestinal disorder [Unknown]
  - Diarrhoea [Recovering/Resolving]
  - Hypotension [Unknown]
  - Dehydration [Unknown]
  - Skin turgor decreased [Unknown]
  - Intestinal villi atrophy [Unknown]
  - Tachycardia [Unknown]
